FAERS Safety Report 16195542 (Version 4)
Quarter: 2019Q3

REPORT INFORMATION
  Report Type: Spontaneous
  Country: US (occurrence: US)
  Receive Date: 20190415
  Receipt Date: 20190704
  Transmission Date: 20191004
  Serious: No
  Sender: FDA-Public Use
  Company Number: US-GW PHARMA-201902USGW0417

PATIENT

DRUGS (7)
  1. ONFI [Suspect]
     Active Substance: CLOBAZAM
     Indication: PRODUCT USED FOR UNKNOWN INDICATION
     Dosage: 12 MILLILITER, BID
     Route: 065
  2. EPIDIOLEX [Suspect]
     Active Substance: CANNABIDIOL
     Indication: EPILEPSY
     Dosage: 250 MILLIGRAM, BID
     Route: 048
     Dates: start: 20181206
  3. EPIDIOLEX [Suspect]
     Active Substance: CANNABIDIOL
     Indication: GENE MUTATION
  4. VIMPAT [Concomitant]
     Active Substance: LACOSAMIDE
     Indication: PRODUCT USED FOR UNKNOWN INDICATION
     Dosage: 14.5 MILLILITER, BID
     Route: 065
  5. ONFI [Suspect]
     Active Substance: CLOBAZAM
     Dosage: 7 MILLILITER, BID
     Route: 065
  6. ONFI [Suspect]
     Active Substance: CLOBAZAM
     Dosage: 11.5 MILLILITER, BID
     Route: 065
  7. ONFI [Suspect]
     Active Substance: CLOBAZAM
     Dosage: 8 MILLILITER, BID
     Route: 065

REACTIONS (1)
  - Pityriasis rosea [Recovered/Resolved]

NARRATIVE: CASE EVENT DATE: 20190105
